FAERS Safety Report 18096165 (Version 5)
Quarter: 2020Q4

REPORT INFORMATION
  Report Type: Spontaneous
  Country: US (occurrence: US)
  Receive Date: 20200730
  Receipt Date: 20201204
  Transmission Date: 20210113
  Serious: Yes (Other)
  Sender: FDA-Public Use
  Company Number: US-BAYER-2020-150096

PATIENT
  Age: 32 Year
  Sex: Male

DRUGS (8)
  1. KOGENATE FS [Suspect]
     Active Substance: ANTIHEMOPHILIC FACTOR, HUMAN RECOMBINANT
     Indication: FACTOR VIII DEFICIENCY
     Dosage: 1500 U
     Route: 042
  2. KOGENATE FS [Suspect]
     Active Substance: ANTIHEMOPHILIC FACTOR, HUMAN RECOMBINANT
     Indication: FACTOR VIII DEFICIENCY
     Dosage: 2 DF, FOR TREATMENT OF ONGOING LEFT KNEE BLEED
     Route: 042
     Dates: start: 20200719
  3. KOGENATE FS [Suspect]
     Active Substance: ANTIHEMOPHILIC FACTOR, HUMAN RECOMBINANT
     Indication: FACTOR VIII DEFICIENCY
     Dosage: 741 UN; 1500 UN IV
     Route: 042
  4. KOGENATE FS [Suspect]
     Active Substance: ANTIHEMOPHILIC FACTOR, HUMAN RECOMBINANT
     Indication: FACTOR VIII DEFICIENCY
     Dosage: 1470 U, TOOK AN EXTRA DOSE TO RESOLVE RIGHT KNEE AND LEFT ANKLE BLEED
     Route: 042
     Dates: start: 20201127
  5. KOGENATE FS [Suspect]
     Active Substance: ANTIHEMOPHILIC FACTOR, HUMAN RECOMBINANT
     Indication: FACTOR VIII DEFICIENCY
     Dosage: 741 U; 2 DF ON 21-OCT-2020 AND 23-OCT-2020 FOR PROPHYLAXIS
     Route: 042
     Dates: start: 20201021, end: 20201023
  6. KOGENATE FS [Suspect]
     Active Substance: ANTIHEMOPHILIC FACTOR, HUMAN RECOMBINANT
     Indication: FACTOR VIII DEFICIENCY
     Dosage: 2 DF, FOR TREATMENT OF TWO SPONTANEOUS BLEEDS IN LEFT KNEE AND LEFT ANKLE ON 22-OCT-2020 AND 24-OCT-
     Route: 042
     Dates: start: 20201022, end: 20201024
  7. KOGENATE FS [Suspect]
     Active Substance: ANTIHEMOPHILIC FACTOR, HUMAN RECOMBINANT
     Indication: FACTOR VIII DEFICIENCY
     Dosage: 1 DF FOR TREATMENT OF RIGHT KNEE BLEED
     Route: 042
     Dates: start: 20200817
  8. ELOCTATE [Concomitant]
     Active Substance: (1-743)-(1638-2332)-BLOOD-COAGULATION FACTOR VIII (SYNTHETIC HUMAN) FUSION PROTEIN WITH IMMUNOGLOBULIN G1 (SYNTHETIC HUMAN FC DOMAIN FRAGMENT), (1444-6^),(1447-9^)-BIS(DISULFIDE) WITH IMMUNOGLOBULIN G1 (SYNTHETIC HUMAN FC DOMAIN FRAGMENT)
     Dosage: 1 DF

REACTIONS (5)
  - Haemarthrosis [Recovered/Resolved]
  - Central venous catheter removal [None]
  - Haemarthrosis [Recovered/Resolved]
  - Haemarthrosis [None]
  - Haemarthrosis [Unknown]

NARRATIVE: CASE EVENT DATE: 20200719
